FAERS Safety Report 7017084-7 (Version None)
Quarter: 2010Q3

REPORT INFORMATION
  Report Type: 
  Country: None (occurrence: None)
  Receive Date: 20100928
  Receipt Date: 20100921
  Transmission Date: 20110219
  Serious: Yes (Hospitalization)
  Sender: FDA-Public Use
  Company Number: JP-SP-2010-04679

PATIENT
  Age: 80 Year
  Sex: Male

DRUGS (1)
  1. IMMUCYST [Suspect]
     Indication: BLADDER CANCER
     Route: 043
     Dates: start: 20090121, end: 20090311

REACTIONS (4)
  - EPIDIDYMITIS TUBERCULOUS [None]
  - ERYTHEMA [None]
  - TESTICULAR PAIN [None]
  - TESTICULAR SWELLING [None]
